FAERS Safety Report 26054506 (Version 1)
Quarter: 2025Q4

REPORT INFORMATION
  Report Type: Spontaneous
  Country: JP (occurrence: JP)
  Receive Date: 20251117
  Receipt Date: 20251117
  Transmission Date: 20260118
  Serious: Yes (Hospitalization, Other)
  Sender: ELI LILLY AND COMPANY
  Company Number: JP-ELI_LILLY_AND_COMPANY-JP202509001249

PATIENT
  Age: 79 Year
  Sex: Male

DRUGS (16)
  1. MOUNJARO [Suspect]
     Active Substance: TIRZEPATIDE
     Indication: Type 2 diabetes mellitus
     Dosage: UNK
     Route: 058
     Dates: start: 202408, end: 202507
  2. PITAVASTATIN CALCIUM [Concomitant]
     Active Substance: PITAVASTATIN CALCIUM
  3. DIPHENIDOL HYDROCHLORIDE [Concomitant]
     Active Substance: DIPHENIDOL HYDROCHLORIDE
  4. NICORANDIL [Concomitant]
     Active Substance: NICORANDIL
  5. ASPIRIN [Concomitant]
     Active Substance: ASPIRIN
  6. VONOPRAZAN FUMARATE [Concomitant]
     Active Substance: VONOPRAZAN FUMARATE
  7. GLIMEPIRIDE [Concomitant]
     Active Substance: GLIMEPIRIDE
  8. TOFOGLIFLOZIN [Concomitant]
     Active Substance: TOFOGLIFLOZIN
  9. IMEGLIMIN HYDROCHLORIDE [Concomitant]
     Active Substance: IMEGLIMIN HYDROCHLORIDE
  10. METGLUCO [Concomitant]
     Active Substance: METFORMIN HYDROCHLORIDE
  11. MAGNESIUM OXIDE [Concomitant]
     Active Substance: MAGNESIUM OXIDE
  12. AMITIZA [Concomitant]
     Active Substance: LUBIPROSTONE
  13. SENNOSIDES [Concomitant]
     Active Substance: SENNOSIDES
  14. SILODOSIN [Concomitant]
     Active Substance: SILODOSIN
  15. DUTASTERIDE [Concomitant]
     Active Substance: DUTASTERIDE
  16. VIBEGRON [Concomitant]
     Active Substance: VIBEGRON

REACTIONS (4)
  - Rectal ulcer [Recovered/Resolved]
  - Constipation [Unknown]
  - Anaemia [Unknown]
  - Hepatic function abnormal [Unknown]

NARRATIVE: CASE EVENT DATE: 20250828
